FAERS Safety Report 4365732-2 (Version None)
Quarter: 2004Q2

REPORT INFORMATION
  Report Type: 
  Country: None (occurrence: None)
  Receive Date: 20040520
  Receipt Date: 20040513
  Transmission Date: 20050107
  Serious: Yes (Life-Threatening, Hospitalization, Other)
  Sender: FDA-Public Use
  Company Number: 2004-03-1914

PATIENT
  Age: 57 Year
  Sex: Female
  Weight: 80 kg

DRUGS (3)
  1. AERIUS (DESLORATADINE) TABLETS [Suspect]
     Indication: SUICIDE ATTEMPT
     Dosage: 19 TABLETS ORAL
     Route: 048
     Dates: start: 20040328, end: 20040328
  2. NOCTAMID TABLETS [Suspect]
     Indication: SUICIDE ATTEMPT
     Dosage: 4 MG ORAL
     Route: 048
     Dates: start: 20040328, end: 20040328
  3. ALCOHOL [Suspect]
     Indication: SUICIDE ATTEMPT
     Dosage: ORAL
     Route: 048

REACTIONS (5)
  - ANTEROGRADE AMNESIA [None]
  - BLOOD ALCOHOL INCREASED [None]
  - DISORIENTATION [None]
  - SOMNOLENCE [None]
  - SUICIDE ATTEMPT [None]
